FAERS Safety Report 6177573-4 (Version None)
Quarter: 2009Q2

REPORT INFORMATION
  Report Type: 
  Country: None (occurrence: None)
  Receive Date: 20090501
  Receipt Date: 20090501
  Transmission Date: 20091009
  Serious: No
  Sender: FDA-Public Use
  Company Number: None

PATIENT
  Age: 45 Year
  Sex: Female
  Weight: 62.6 kg

DRUGS (14)
  1. HYDROMORPHONE HCL [Suspect]
     Indication: PAIN
     Dosage: 0.6MG/HR IV CONTINUOUS
     Route: 042
     Dates: start: 20090210, end: 20090217
  2. FUROSEMIDE [Concomitant]
  3. QUETIAPINE [Concomitant]
  4. HEPARIN [Concomitant]
  5. MIRTAZAPINE [Concomitant]
  6. CASPOFUNGIN [Concomitant]
  7. INSULIN [Concomitant]
  8. IPRATROPIUM BROMIDE [Concomitant]
  9. HALOPERIDOL [Concomitant]
  10. LANSOPRAZOLE [Concomitant]
  11. METOPROLOL [Concomitant]
  12. LEVOTHYROXINE SODIUM [Concomitant]
  13. ONDANSETRON [Concomitant]
  14. DEXTROSE [Concomitant]

REACTIONS (1)
  - LETHARGY [None]
